FAERS Safety Report 19092385 (Version 1)
Quarter: 2021Q2

REPORT INFORMATION
  Report Type: Report from Study
  Country: US (occurrence: US)
  Receive Date: 20210405
  Receipt Date: 20210405
  Transmission Date: 20210717
  Serious: Yes (Hospitalization)
  Sender: FDA-Public Use
  Company Number: PHHO2018US010327

PATIENT
  Age: 60 Year
  Sex: Male
  Weight: 137.87 kg

DRUGS (13)
  1. MAYZENT [Suspect]
     Active Substance: SIPONIMOD
     Dosage: 0.75 MG, 2.08 ML/HR
     Route: 042
     Dates: start: 20180902, end: 20180902
  2. LOPRESSOR [Concomitant]
     Active Substance: METOPROLOL TARTRATE
     Indication: HYPERTENSION
     Dosage: 50 MG, BID
     Route: 065
     Dates: start: 20180904
  3. VALTREX [Concomitant]
     Active Substance: VALACYCLOVIR HYDROCHLORIDE
     Indication: RASH
     Dosage: 1 G, TID
     Route: 065
     Dates: start: 20180905, end: 20180907
  4. LIPITOR [Concomitant]
     Active Substance: ATORVASTATIN CALCIUM
     Indication: HYPERCHOLESTEROLAEMIA
     Dosage: 20 MG, QD
     Route: 065
     Dates: start: 20180902
  5. SARNA [Concomitant]
     Indication: RASH
     Dosage: 0.5 %, UNK
     Route: 065
     Dates: start: 20180904
  6. LOVENOX [Concomitant]
     Active Substance: ENOXAPARIN SODIUM
     Indication: THROMBOSIS PROPHYLAXIS
     Dosage: 40 MG, QD
     Route: 058
     Dates: start: 20180902, end: 20180911
  7. MAYZENT [Suspect]
     Active Substance: SIPONIMOD
     Dosage: 0.5 MG, 2.08 ML/HR
     Route: 042
     Dates: start: 20180901, end: 20180902
  8. MAYZENT [Suspect]
     Active Substance: SIPONIMOD
     Indication: HAEMORRHAGIC STROKE
     Dosage: 0.25 MG, 2.08 ML/HR
     Route: 042
     Dates: start: 20180901, end: 20180901
  9. ENOXAPARIN [Concomitant]
     Active Substance: ENOXAPARIN
     Indication: THROMBOSIS PROPHYLAXIS
     Dosage: 40 MG, UNK
     Route: 058
     Dates: start: 20180906
  10. MAYZENT [Suspect]
     Active Substance: SIPONIMOD
     Dosage: 1.25 MG, 2.08 ML/HR
     Route: 042
     Dates: start: 20180902, end: 20180902
  11. LOVENOX [Concomitant]
     Active Substance: ENOXAPARIN SODIUM
     Dosage: 40 MG, BID
     Route: 058
     Dates: start: 20180912
  12. CATAPRES [Concomitant]
     Active Substance: CLONIDINE HYDROCHLORIDE
     Indication: HYPERTENSION
     Dosage: 0.3 MG, TID
     Route: 065
     Dates: start: 20180905
  13. LISINOPRIL. [Concomitant]
     Active Substance: LISINOPRIL
     Indication: HYPERTENSION
     Dosage: 40 MG, QD
     Route: 065
     Dates: start: 20180902

REACTIONS (1)
  - Embolism venous [Recovered/Resolved]

NARRATIVE: CASE EVENT DATE: 20180910
